FAERS Safety Report 17042770 (Version 1)
Quarter: 2019Q4

REPORT INFORMATION
  Report Type: Spontaneous
  Country: GB (occurrence: GB)
  Receive Date: 20191118
  Receipt Date: 20191118
  Transmission Date: 20200122
  Serious: Yes (Life-Threatening, Hospitalization)
  Sender: FDA-Public Use
  Company Number: GB-PFIZER INC-2019490999

PATIENT
  Age: 73 Year
  Sex: Female
  Weight: 72 kg

DRUGS (23)
  1. TRAMADOL. [Suspect]
     Active Substance: TRAMADOL
     Indication: ABDOMINAL PAIN LOWER
     Dosage: 100 MG, AS NEEDED
     Route: 048
  2. PIZOTIFEN [Suspect]
     Active Substance: PIZOTYLINE
     Indication: MIGRAINE
     Dosage: 1.5 MG, 1X/DAY(AT NIGHT)
     Route: 048
  3. REMIFENTANIL [Suspect]
     Active Substance: REMIFENTANIL
     Indication: MAINTENANCE OF ANAESTHESIA
     Dosage: 2 MG, UNK
     Route: 042
     Dates: start: 20180725
  4. SERTRALINE HCL [Suspect]
     Active Substance: SERTRALINE HYDROCHLORIDE
     Indication: DEPRESSION
     Dosage: 200 MG, DAILY
     Route: 048
  5. PROPOFOL. [Suspect]
     Active Substance: PROPOFOL
     Indication: INDUCTION OF ANAESTHESIA
     Dosage: 210 MG, UNK
     Dates: start: 20180725
  6. FOLIC ACID. [Concomitant]
     Active Substance: FOLIC ACID
     Dosage: 5 MG, DAILY
  7. ROCURONIUM [Suspect]
     Active Substance: ROCURONIUM BROMIDE
     Indication: INDUCTION OF ANAESTHESIA
     Dosage: 40 MG, UNK
     Dates: start: 20180725
  8. SUGAMMADEX [Suspect]
     Active Substance: SUGAMMADEX
     Dosage: 150 MG, UNK
     Dates: start: 20180725
  9. OMEPRAZOLE. [Concomitant]
     Active Substance: OMEPRAZOLE
     Dosage: 20 MG, DAILY
  10. METHYLTHIONINIUM CHLORIDE [Suspect]
     Active Substance: METHYLENE BLUE
     Indication: PARATHYROIDECTOMY
     Dosage: 350 MG, UNK
     Route: 042
     Dates: start: 20180725, end: 20180725
  11. LEVOTHYROXINE. [Concomitant]
     Active Substance: LEVOTHYROXINE
     Dosage: 75 MG, DAILY
  12. ATENOLOL. [Concomitant]
     Active Substance: ATENOLOL
     Dosage: 100 MG, DAILY
  13. DOXAZOSIN [Concomitant]
     Active Substance: DOXAZOSIN MESYLATE
     Dosage: 4 MG, DAILY
  14. DEXAMETHASONE SODIUM PHOSPHATE. [Suspect]
     Active Substance: DEXAMETHASONE SODIUM PHOSPHATE
     Dosage: 6.6 MG, UNK
     Dates: start: 20180725
  15. RAMIPRIL. [Concomitant]
     Active Substance: RAMIPRIL
     Dosage: 10 MG, DAILY
  16. SIMVASTATIN. [Concomitant]
     Active Substance: SIMVASTATIN
     Dosage: 40 MG, 1X/DAY(AT NIGHT)
  17. SUMATRIPTAN. [Suspect]
     Active Substance: SUMATRIPTAN
     Indication: MIGRAINE
     Dosage: 100 MG, AS NEEDED
     Route: 048
  18. ONDANSETRON HYDROCHLORIDE. [Suspect]
     Active Substance: ONDANSETRON HYDROCHLORIDE
     Indication: PROCEDURAL NAUSEA
     Dosage: 4 MG, UNK
     Route: 042
     Dates: start: 20180725
  19. CHLORDIAZEPOXIDE. [Concomitant]
     Active Substance: CHLORDIAZEPOXIDE
     Dosage: 5 MG, 1X/DAY(AT NIGHT)
  20. MORPHINE [Suspect]
     Active Substance: MORPHINE
     Dosage: 3 MG, UNK
     Dates: start: 20180725
  21. FENTANYL. [Suspect]
     Active Substance: FENTANYL
     Indication: ANAESTHETIC PREMEDICATION
     Dosage: 100 UG, UNK
     Route: 042
     Dates: start: 20180725
  22. FELODIPINE. [Concomitant]
     Active Substance: FELODIPINE
     Dosage: 10 MG, DAILY
  23. AZITHROMYCIN ANHYDROUS. [Concomitant]
     Active Substance: AZITHROMYCIN ANHYDROUS
     Dosage: 750 MG, WEEKLY(MONDAY,WEDNESDAY,FRIDAY)

REACTIONS (8)
  - Clonus [Unknown]
  - Paraesthesia [Unknown]
  - Serotonin syndrome [Recovering/Resolving]
  - Confusional state [Unknown]
  - Hyperreflexia [Unknown]
  - Dyskinesia [Unknown]
  - Muscle twitching [Unknown]
  - Body temperature increased [Unknown]

NARRATIVE: CASE EVENT DATE: 20180725
